FAERS Safety Report 11782754 (Version 11)
Quarter: 2019Q4

REPORT INFORMATION
  Report Type: Spontaneous
  Country: US (occurrence: US)
  Receive Date: 20151127
  Receipt Date: 20191017
  Transmission Date: 20200122
  Serious: Yes (Other)
  Sender: FDA-Public Use
  Company Number: US-PFIZER INC-2015406045

PATIENT
  Age: 59 Year
  Sex: Female
  Weight: 81 kg

DRUGS (30)
  1. SPIRONOLACTONE. [Concomitant]
     Active Substance: SPIRONOLACTONE
     Indication: DYSPNOEA
  2. REVATIO [Suspect]
     Active Substance: SILDENAFIL CITRATE
     Dosage: 20 MG, 3X/DAY
     Route: 048
     Dates: start: 201403
  3. SPIRONOLACTONE. [Concomitant]
     Active Substance: SPIRONOLACTONE
     Indication: CARDIAC DISORDER
     Dosage: 12.5 MG, TWICE DAILY (HALF TABLET IN THE MORNING AND HALF IN THE EVENING)
     Route: 048
     Dates: start: 2014
  4. ESCITALOPRAM [Concomitant]
     Active Substance: ESCITALOPRAM OXALATE
     Indication: DEPRESSION
     Dosage: UNK
  5. REVATIO [Suspect]
     Active Substance: SILDENAFIL CITRATE
     Dosage: 40 MG, 3X/DAY (TWO 20 MG TABLETS THREE TIMES A DAY)
     Route: 048
     Dates: start: 201710
  6. GABAPENTIN. [Concomitant]
     Active Substance: GABAPENTIN
     Indication: INTERVERTEBRAL DISC DEGENERATION
  7. HYDROCODONE/ACETAMINOPHEN [Concomitant]
     Active Substance: ACETAMINOPHEN\HYDROCODONE
     Indication: PAIN
     Dosage: 1 DF, 4X/DAY[HYDROCODONE BITARTRATE: 10; ACETAMINOPHEN: 325]
     Route: 048
     Dates: start: 2003
  8. REVATIO [Suspect]
     Active Substance: SILDENAFIL CITRATE
     Indication: PULMONARY HYPERTENSION
     Dosage: 20 MG, 3X/DAY (THREE TIMES A DAY)
     Route: 048
     Dates: start: 201311
  9. REVATIO [Suspect]
     Active Substance: SILDENAFIL CITRATE
     Dosage: 20 MG, 3X/DAY
     Route: 048
     Dates: start: 2014
  10. REVATIO [Suspect]
     Active Substance: SILDENAFIL CITRATE
     Dosage: 20 MG, 3X/DAY
     Route: 048
     Dates: start: 20161207
  11. NORCO [Concomitant]
     Active Substance: ACETAMINOPHEN\HYDROCODONE BITARTRATE
     Indication: PAIN
     Dosage: 10/325 MG, 4X/DAY
     Route: 048
  12. GABAPENTIN. [Concomitant]
     Active Substance: GABAPENTIN
     Indication: NEUROPATHY PERIPHERAL
     Dosage: 800 MG, 4X/DAY (ONE TABLET 4 TIMES DAY)
     Route: 048
     Dates: start: 2003
  13. CITALOPRAM HYDROBROMIDE. [Concomitant]
     Active Substance: CITALOPRAM HYDROBROMIDE
     Indication: DEPRESSION
     Dosage: 40 MG, 1X/DAY
     Route: 048
  14. PRAVASTATIN SODIUM. [Concomitant]
     Active Substance: PRAVASTATIN SODIUM
     Indication: BLOOD CHOLESTEROL ABNORMAL
     Dosage: 80 MG, 1X/DAY AT BEDTIME
     Route: 048
     Dates: start: 201510
  15. NEXIUM [Concomitant]
     Active Substance: ESOMEPRAZOLE MAGNESIUM
     Dosage: 40 MG, 1X/DAY
     Route: 048
     Dates: start: 201510, end: 201607
  16. LEVOTHYROXINE SODIUM. [Concomitant]
     Active Substance: LEVOTHYROXINE SODIUM
     Indication: THYROID DISORDER
     Dosage: 88 UG, 1X/DAY
     Route: 048
  17. GABAPENTIN. [Concomitant]
     Active Substance: GABAPENTIN
     Indication: NEURALGIA
  18. LEXAPRO [Concomitant]
     Active Substance: ESCITALOPRAM OXALATE
     Indication: DEPRESSION
     Dosage: 40 MG, 1X/DAY
     Route: 048
     Dates: start: 2015
  19. SPIRONOLACTONE. [Concomitant]
     Active Substance: SPIRONOLACTONE
     Indication: HYPERTENSION
     Dosage: HALF OF A 25 MG TABLET, ONCE PER DAY
     Route: 048
     Dates: start: 2014
  20. HYDROXYZINE HCL [Concomitant]
     Active Substance: HYDROXYZINE HYDROCHLORIDE
     Indication: PRURITUS
     Dosage: 25 MG GIVEN 90 A MONTH AS NEEDED FOR ITCHING (MAY TAKE 4 IN ONE DAY AND NONE FOR A FEW DAYS)
     Route: 048
     Dates: start: 2010
  21. DIGOXIN. [Concomitant]
     Active Substance: DIGOXIN
     Indication: HEART RATE ABNORMAL
     Dosage: 0.125 MG, 1X/DAY
     Route: 048
  22. DIGOXIN. [Concomitant]
     Active Substance: DIGOXIN
     Indication: HYPERTENSION
  23. METOPROLOL TARTRATE. [Concomitant]
     Active Substance: METOPROLOL TARTRATE
     Indication: HYPERTENSION
     Dosage: 25 MG, DAILY (HALF TABLET IN THE MORNING AND HALF IN THE EVENING)
     Route: 048
  24. HYDROCODONE/ACETAMINOPHEN [Concomitant]
     Active Substance: ACETAMINOPHEN\HYDROCODONE
     Indication: INTERVERTEBRAL DISC DEGENERATION
  25. LEXAPRO [Concomitant]
     Active Substance: ESCITALOPRAM OXALATE
     Indication: ANXIETY
  26. REVATIO [Suspect]
     Active Substance: SILDENAFIL CITRATE
     Dosage: 1 TABLET, 3 TIMES A DAY
  27. REVATIO [Suspect]
     Active Substance: SILDENAFIL CITRATE
     Dosage: 40 MG, 3X/DAY (TWO 20MG TABLETS, THREE TIMES A DAY)
     Route: 048
  28. METOPROLOL TARTRATE. [Concomitant]
     Active Substance: METOPROLOL TARTRATE
     Dosage: HALF OF A 25 MG TABLET,ONCE DAILY
     Route: 048
  29. GABAPENTIN. [Concomitant]
     Active Substance: GABAPENTIN
     Indication: PAIN
  30. CYCLOBENZAPRINE. [Concomitant]
     Active Substance: CYCLOBENZAPRINE
     Indication: TEMPOROMANDIBULAR JOINT SYNDROME
     Dosage: 10 MG, 3X/DAY
     Route: 048

REACTIONS (24)
  - Tooth disorder [Unknown]
  - Hyperhidrosis [Not Recovered/Not Resolved]
  - Dry mouth [Unknown]
  - Pulmonary oedema [Unknown]
  - Product use issue [Unknown]
  - Ear pain [Not Recovered/Not Resolved]
  - Influenza [Recovering/Resolving]
  - Irritable bowel syndrome [Unknown]
  - Decreased appetite [Recovering/Resolving]
  - Drug ineffective [Unknown]
  - Off label use [Unknown]
  - Product dose omission [Unknown]
  - Ear discomfort [Not Recovered/Not Resolved]
  - Weight decreased [Unknown]
  - Sinus headache [Unknown]
  - Influenza like illness [Recovering/Resolving]
  - Nasopharyngitis [Not Recovered/Not Resolved]
  - Dyspnoea [Not Recovered/Not Resolved]
  - Sinus disorder [Unknown]
  - Headache [Recovering/Resolving]
  - Viral infection [Not Recovered/Not Resolved]
  - Malaise [Unknown]
  - Intentional product misuse [Unknown]
  - Rhinorrhoea [Not Recovered/Not Resolved]

NARRATIVE: CASE EVENT DATE: 2015
